FAERS Safety Report 4836680-6 (Version None)
Quarter: 2005Q4

REPORT INFORMATION
  Report Type: 
  Country: None (occurrence: None)
  Receive Date: 20051121
  Receipt Date: 20051111
  Transmission Date: 20060501
  Serious: Yes (Other)
  Sender: FDA-Public Use
  Company Number: 219517

PATIENT
  Age: 73 Year
  Sex: Female

DRUGS (2)
  1. ACTIVASE [Suspect]
     Indication: RETINAL HAEMORRHAGE
     Dosage: 0.1 ML, SINGLE, INTRAVITREAL
  2. SULFUR HEXAFLUORIDE GAS (SULFUR HEXAFLUORIDE GAS) [Concomitant]

REACTIONS (7)
  - BLINDNESS [None]
  - CIRCUMSTANCE OR INFORMATION CAPABLE OF LEADING TO MEDICATION ERROR [None]
  - ENDOPHTHALMITIS [None]
  - EYE EXCISION [None]
  - GRAM STAIN POSITIVE [None]
  - PAIN [None]
  - STREPTOCOCCAL INFECTION [None]
